FAERS Safety Report 6372911-1 (Version None)
Quarter: 2009Q3

REPORT INFORMATION
  Report Type: 
  Country: None (occurrence: None)
  Receive Date: 20090924
  Receipt Date: 20081223
  Transmission Date: 20100115
  Serious: No
  Sender: FDA-Public Use
  Company Number: US-ASTRAZENECA-2008UW26110

PATIENT
  Age: 55 Year
  Sex: Female

DRUGS (9)
  1. SEROQUEL XR [Suspect]
     Indication: SCHIZOPHRENIA
     Dosage: 300 MG AND 200 MG
     Route: 048
     Dates: start: 20060226
  2. SEROQUEL XR [Suspect]
     Dosage: 400 MG AND 100 MG
     Route: 048
     Dates: start: 20060226
  3. LAMOTRIGINE [Concomitant]
  4. STRATTERA [Concomitant]
  5. METFORMIN HCL [Concomitant]
  6. ZETIA [Concomitant]
  7. PEPCID [Concomitant]
  8. BONIVA [Concomitant]
  9. FISH OIL [Concomitant]

REACTIONS (3)
  - AKATHISIA [None]
  - THERAPY REGIMEN CHANGED [None]
  - THROAT TIGHTNESS [None]
